FAERS Safety Report 8384560 (Version 2)
Quarter: 2013Q2

REPORT INFORMATION
  Report Type: Spontaneous
  Country: US (occurrence: None)
  Receive Date: 20111221
  Receipt Date: 20121227
  Transmission Date: 20140414
  Serious: Yes (Hospitalization)
  Sender: FDA-Public Use
  Company Number: PHEH2011US07442

PATIENT
  Age: 30 Year
  Sex: Female

DRUGS (8)
  1. EXJADE [Suspect]
     Indication: SICKLE CELL ANAEMIA WITH CRISIS
     Route: 048
     Dates: start: 20061101
  2. MORPHINE (MORPHINE) [Concomitant]
  3. FLUOXETINE (FLUOXETINE) [Concomitant]
  4. GABAPENTIN (GABAPENTIN) [Concomitant]
  5. HYDROMORPHONE (HYDROMORPHONE) [Concomitant]
  6. PROPRANOLOL (PROPRANOLOL) [Concomitant]
  7. HYDROXYUREA (HYROXYCARBAMIDE) [Concomitant]
  8. FOLIC ACID (FOLIC ACID) [Concomitant]

REACTIONS (1)
  - SICKLE CELL ANAEMIA WITH CRISIS [None]
